FAERS Safety Report 10907398 (Version 2)
Quarter: 2015Q2

REPORT INFORMATION
  Report Type: Spontaneous
  Country: DE (occurrence: DE)
  Receive Date: 20150312
  Receipt Date: 20150427
  Transmission Date: 20150821
  Serious: Yes (Other)
  Sender: FDA-Public Use
  Company Number: DE-PFIZER INC-2015087912

PATIENT
  Age: 64 Year
  Sex: Female

DRUGS (3)
  1. LYRICA [Suspect]
     Active Substance: PREGABALIN
     Dosage: 100 MG 0-0-1
     Dates: start: 201503
  2. LYRICA [Suspect]
     Active Substance: PREGABALIN
     Dosage: 75 MG 0-0-1
     Dates: start: 201503
  3. LYRICA [Suspect]
     Active Substance: PREGABALIN
     Indication: NEURALGIA
     Dosage: 150 MG, 25-25-100
     Dates: start: 201502

REACTIONS (5)
  - Impaired driving ability [Recovered/Resolved]
  - Memory impairment [Recovered/Resolved]
  - Intervertebral disc protrusion [Unknown]
  - Dementia [Recovered/Resolved]
  - Somnolence [Recovered/Resolved]
